FAERS Safety Report 9349627 (Version 1)
Quarter: 2013Q2

REPORT INFORMATION
  Report Type: Spontaneous
  Country: IT (occurrence: IT)
  Receive Date: 20130614
  Receipt Date: 20130614
  Transmission Date: 20140414
  Serious: Yes (Other)
  Sender: FDA-Public Use
  Company Number: IT-ELI_LILLY_AND_COMPANY-IT201306003076

PATIENT
  Sex: Male

DRUGS (2)
  1. EFIENT [Suspect]
  2. ASA [Concomitant]
     Dosage: UNK

REACTIONS (2)
  - Wound [Unknown]
  - Wound haemorrhage [Unknown]
